FAERS Safety Report 20548711 (Version 1)
Quarter: 2022Q1

REPORT INFORMATION
  Report Type: Spontaneous
  Country: US (occurrence: US)
  Receive Date: 20220303
  Receipt Date: 20220303
  Transmission Date: 20220424
  Serious: Yes (Hospitalization, Other)
  Sender: FDA-Public Use
  Company Number: US-VERTEX PHARMACEUTICALS-2021-019005

PATIENT
  Sex: Male

DRUGS (23)
  1. TRIKAFTA [Suspect]
     Active Substance: ELEXACAFTOR\IVACAFTOR\TEZACAFTOR
     Indication: Cystic fibrosis
     Dosage: 2 TABS AM, 1 BLUE TAB, PM
     Route: 048
     Dates: start: 20200509, end: 2020
  2. TRIKAFTA [Suspect]
     Active Substance: ELEXACAFTOR\IVACAFTOR\TEZACAFTOR
     Dosage: 2 ORANGE TABS ONE MORNING, 1 BLUE TAB NEXT MORNING, NO EVENING DOSES
     Route: 048
     Dates: start: 20201030, end: 20211201
  3. ZOFRAN [Concomitant]
     Active Substance: ONDANSETRON HYDROCHLORIDE
  4. ZENPEP [Concomitant]
     Active Substance: PANCRELIPASE AMYLASE\PANCRELIPASE LIPASE\PANCRELIPASE PROTEASE
     Dosage: 40K
  5. URSO [Concomitant]
     Active Substance: URSODIOL
     Dosage: 300MG
  6. SIVEXTRO [Concomitant]
     Active Substance: TEDIZOLID PHOSPHATE
  7. PROGRAF [Concomitant]
     Active Substance: TACROLIMUS
  8. PREVYMIS [Concomitant]
     Active Substance: LETERMOVIR
  9. PREDNISONE [Concomitant]
     Active Substance: PREDNISONE
  10. CLARITIN [Concomitant]
     Active Substance: LORATADINE
  11. PEPCID [Concomitant]
     Active Substance: FAMOTIDINE
  12. NEXIUM I.V. [Concomitant]
     Active Substance: ESOMEPRAZOLE SODIUM
  13. METHYLPREDNISOLONE [Concomitant]
     Active Substance: METHYLPREDNISOLONE
  14. LOPERAMIDE [Concomitant]
     Active Substance: LOPERAMIDE
  15. LOPERAMIDE HYDROCHLORIDE [Concomitant]
     Active Substance: LOPERAMIDE HYDROCHLORIDE
  16. HUMULINE [Concomitant]
  17. HUMALOG [Concomitant]
     Active Substance: INSULIN LISPRO
  18. BUDESONIDE [Concomitant]
     Active Substance: BUDESONIDE
  19. AVYCAZ [Concomitant]
     Active Substance: AVIBACTAM SODIUM\CEFTAZIDIME
  20. CHOLECALCIFEROL [Concomitant]
     Active Substance: CHOLECALCIFEROL
  21. VITAMIN B CO [Concomitant]
  22. DIFLUCAN [Concomitant]
     Active Substance: FLUCONAZOLE
  23. LIALDA [Concomitant]
     Active Substance: MESALAMINE

REACTIONS (10)
  - Drug-induced liver injury [Unknown]
  - Hepatic enzyme increased [Recovering/Resolving]
  - Blood urine present [Unknown]
  - Glucose urine present [Unknown]
  - Leukocytosis [Unknown]
  - Constipation [Unknown]
  - Chromaturia [Unknown]
  - Hepatic cancer [Recovering/Resolving]
  - Abdominal pain [Unknown]
  - Blood alkaline phosphatase increased [Not Recovered/Not Resolved]

NARRATIVE: CASE EVENT DATE: 20210101
